FAERS Safety Report 4396625-2 (Version None)
Quarter: 2004Q3

REPORT INFORMATION
  Report Type: 
  Country: None (occurrence: None)
  Receive Date: 20040713
  Receipt Date: 20040713
  Transmission Date: 20050211
  Serious: Yes (Other)
  Sender: FDA-Public Use
  Company Number: None

PATIENT
  Age: 77 Year
  Sex: Male
  Weight: 84 kg

DRUGS (1)
  1. DOXEPIN HCL [Suspect]
     Indication: RASH PRURITIC
     Dosage: 5% SMALL QID TOPICAL
     Route: 061
     Dates: start: 20030609, end: 20040611

REACTIONS (3)
  - APPLICATION SITE DERMATITIS [None]
  - APPLICATION SITE DISCHARGE [None]
  - SKIN DISORDER [None]
